FAERS Safety Report 6374356-7 (Version None)
Quarter: 2009Q3

REPORT INFORMATION
  Report Type: 
  Country: None (occurrence: None)
  Receive Date: 20090924
  Receipt Date: 20080812
  Transmission Date: 20100115
  Serious: No
  Sender: FDA-Public Use
  Company Number: A0742443A

PATIENT
  Sex: Male

DRUGS (1)
  1. EPZICOM [Suspect]
     Indication: HIV INFECTION
     Dosage: 1TAB PER DAY
     Route: 048
     Dates: start: 20050101, end: 20080101

REACTIONS (4)
  - ABDOMINAL PAIN [None]
  - DEPRESSION [None]
  - FEELING HOT [None]
  - NAUSEA [None]
